FAERS Safety Report 23572623 (Version 1)
Quarter: 2024Q1

REPORT INFORMATION
  Report Type: Spontaneous
  Country: US (occurrence: US)
  Receive Date: 20240227
  Receipt Date: 20240227
  Transmission Date: 20240410
  Serious: No
  Sender: FDA-Public Use
  Company Number: US-AVADEL CNS PHARMACEUTICALS, LLC-2023AVA00419

PATIENT
  Age: 54 Year
  Sex: Female

DRUGS (16)
  1. LUMRYZ [Suspect]
     Active Substance: SODIUM OXYBATE
     Indication: Narcolepsy
     Dosage: 9 G, ONCE NIGHTLY
     Route: 048
     Dates: start: 20231112
  2. HYDROCODONE [Concomitant]
     Active Substance: HYDROCODONE
  3. RELPAX [Concomitant]
     Active Substance: ELETRIPTAN HYDROBROMIDE
  4. DEXTROAMPHETAMINE [Concomitant]
     Active Substance: DEXTROAMPHETAMINE
  5. NADOLOL [Concomitant]
     Active Substance: NADOLOL
  6. LEVOTHYROXINE [Concomitant]
     Active Substance: LEVOTHYROXINE\LEVOTHYROXINE SODIUM
  7. CELOXIB [Concomitant]
  8. BUPROPION [Concomitant]
     Active Substance: BUPROPION
  9. VITAMIN D3 [Concomitant]
     Active Substance: CHOLECALCIFEROL
  10. SERTRALINE [Concomitant]
     Active Substance: SERTRALINE HYDROCHLORIDE
  11. MODAFINIL [Concomitant]
     Active Substance: MODAFINIL
  12. ESTRADIOL [Concomitant]
     Active Substance: ESTRADIOL
  13. PROCHLORPERAZINE [Concomitant]
     Active Substance: PROCHLORPERAZINE
  14. SUMATRIPTAN [Concomitant]
     Active Substance: SUMATRIPTAN
  15. XYREM [Concomitant]
     Active Substance: SODIUM OXYBATE
  16. PROMETRIUM [Concomitant]
     Active Substance: PROGESTERONE

REACTIONS (3)
  - Terminal insomnia [Not Recovered/Not Resolved]
  - Illness [Unknown]
  - Nausea [Not Recovered/Not Resolved]

NARRATIVE: CASE EVENT DATE: 20231101
